FAERS Safety Report 8948114 (Version 2)
Quarter: 2012Q4

REPORT INFORMATION
  Report Type: 
  Country: DE (occurrence: DE)
  Receive Date: 20121204
  Receipt Date: 20121219
  Transmission Date: 20130627
  Serious: Yes (Other)
  Sender: FDA-Public Use
  Company Number: DE-GLAXOSMITHKLINE-D0077900A

PATIENT
  Age: 74 Year
  Sex: Male
  Weight: 90 kg

DRUGS (7)
  1. ATMADISC [Suspect]
     Dosage: 1BLS Twice per day
     Route: 055
     Dates: start: 201202
  2. L-THYROXIN 50 [Concomitant]
     Dosage: 50MCG Per day
     Route: 048
     Dates: start: 20100101
  3. RAMIPRIL [Concomitant]
     Dosage: 5MG Per day
     Route: 048
     Dates: start: 20100101
  4. HUMALOG INSULIN [Concomitant]
     Route: 030
     Dates: start: 20100101
  5. OPIPRAMOL [Concomitant]
     Dosage: 50MG Per day
     Route: 048
     Dates: start: 20100101
  6. LOSARTAN WITH HYDROCHLOROTHIAZIDE [Concomitant]
     Dosage: 62.5MG Per day
     Route: 048
     Dates: start: 20100101
  7. XALATAN [Concomitant]
     Route: 047

REACTIONS (2)
  - Dysphonia [Not Recovered/Not Resolved]
  - Aphonia [Not Recovered/Not Resolved]
